FAERS Safety Report 25679198 (Version 1)
Quarter: 2025Q3

REPORT INFORMATION
  Report Type: Spontaneous
  Country: US (occurrence: US)
  Receive Date: 20250814
  Receipt Date: 20250814
  Transmission Date: 20251021
  Serious: Yes (Other)
  Sender: SANDOZ
  Company Number: US-SANDOZ-SDZ2025US057269

PATIENT
  Age: 64 Year
  Sex: Female

DRUGS (1)
  1. HYRIMOZ [Suspect]
     Active Substance: ADALIMUMAB-ADAZ
     Indication: Product used for unknown indication
     Route: 058
     Dates: start: 20240802

REACTIONS (8)
  - Blindness unilateral [Unknown]
  - Vaginal discharge [Not Recovered/Not Resolved]
  - Eye discharge [Unknown]
  - Arthritis [Unknown]
  - Hypersensitivity [Unknown]
  - Pain in extremity [Unknown]
  - Onychomycosis [Unknown]
  - Product dose omission issue [Unknown]
